FAERS Safety Report 7177008-9 (Version None)
Quarter: 2010Q4

REPORT INFORMATION
  Report Type: 
  Country: None (occurrence: None)
  Receive Date: 20101220
  Receipt Date: 20101210
  Transmission Date: 20110411
  Serious: Yes (Other)
  Sender: FDA-Public Use
  Company Number: US-JNJCH-2010028746

PATIENT
  Age: 64 Year
  Sex: Female
  Weight: 90.7 kg

DRUGS (2)
  1. ROLAIDS SOFTCHEWS UNSPECIFIED [Suspect]
     Indication: GASTROOESOPHAGEAL REFLUX DISEASE
     Dosage: TEXT:UNKNOWN
     Route: 048
  2. ROLAIDS SOFTCHEWS UNSPECIFIED [Suspect]
     Indication: MUSCLE SPASMS

REACTIONS (6)
  - ABDOMINAL PAIN UPPER [None]
  - HAEMATOCHEZIA [None]
  - MALAISE [None]
  - OFF LABEL USE [None]
  - PRODUCT QUALITY ISSUE [None]
  - VOMITING [None]
